FAERS Safety Report 6735967-X (Version None)
Quarter: 2010Q2

REPORT INFORMATION
  Report Type: 
  Country: None (occurrence: None)
  Receive Date: 20100521
  Receipt Date: 20100518
  Transmission Date: 20101027
  Serious: Yes (Hospitalization)
  Sender: FDA-Public Use
  Company Number: B0654692A

PATIENT
  Sex: Female

DRUGS (2)
  1. LAPATINIB [Suspect]
     Indication: BREAST CANCER
     Dosage: 1250MG PER DAY
     Route: 048
     Dates: start: 20091209
  2. DOCETAXEL [Suspect]
     Indication: BREAST CANCER
     Dosage: 100MGM2 EVERY 3 WEEKS
     Route: 042

REACTIONS (2)
  - NEUTROPENIA [None]
  - PYREXIA [None]
